FAERS Safety Report 17141829 (Version 1)
Quarter: 2019Q4

REPORT INFORMATION
  Report Type: Spontaneous
  Country: US (occurrence: US)
  Receive Date: 20191211
  Receipt Date: 20191211
  Transmission Date: 20200122
  Serious: Yes (Other)
  Sender: FDA-Public Use
  Company Number: US-BOIRON INC.-2019BOR00149

PATIENT
  Age: 46 Year
  Sex: Female
  Weight: 54.42 kg

DRUGS (2)
  1. QUIETUDE [HOMEOPATHICS] [Suspect]
     Active Substance: HOMEOPATHICS
     Indication: INSOMNIA
     Dosage: 1 QUICK-DISSOLVING TABLET UNDER THE TONGUE, TWICE (1 TABLET AT 9 AND 1 TABLET AT 11:30, PRESUMED P.M
     Route: 060
     Dates: start: 20191116, end: 20191116
  2. CELEXA [Concomitant]
     Active Substance: CITALOPRAM HYDROBROMIDE
     Indication: ANXIETY

REACTIONS (13)
  - Weight decreased [Recovering/Resolving]
  - Serotonin syndrome [Recovering/Resolving]
  - Mydriasis [Recovering/Resolving]
  - Hot flush [Recovering/Resolving]
  - Malaise [Recovering/Resolving]
  - Intentional underdose [Recovered/Resolved]
  - Blindness transient [Recovering/Resolving]
  - Somnolence [Recovering/Resolving]
  - Vertigo [Recovering/Resolving]
  - Feeling abnormal [Recovering/Resolving]
  - Dizziness [Recovering/Resolving]
  - Night sweats [Recovering/Resolving]
  - Middle insomnia [Recovering/Resolving]

NARRATIVE: CASE EVENT DATE: 20191116
